FAERS Safety Report 8850056 (Version 2)
Quarter: 2014Q2

REPORT INFORMATION
  Report Type: Spontaneous
  Country: GB (occurrence: GB)
  Receive Date: 20121019
  Receipt Date: 20131018
  Transmission Date: 20141212
  Serious: Yes (Other)
  Sender: FDA-Public Use
  Company Number: GB-PFIZER INC-2012256548

PATIENT
  Sex: Female

DRUGS (7)
  1. ATENOLOL [Suspect]
     Indication: BLOOD PRESSURE
     Dosage: 25 MG, QD
     Route: 048
  2. ATENOLOL [Suspect]
     Dosage: UNK
  3. ATENOLOL [Suspect]
     Dosage: UNK
  4. ATENOLOL [Suspect]
     Dosage: UNK
  5. BUMETANIDE [Concomitant]
     Dosage: 1 MG, DAILY
     Route: 065
  6. LORAZEPAM [Concomitant]
     Dosage: 1 MG, UNKNOWN
     Route: 065
  7. OMEPRAZOLE [Concomitant]
     Dosage: 10 MG
     Route: 065

REACTIONS (11)
  - Mouth ulceration [Recovered/Resolved]
  - Malaise [Recovered/Resolved]
  - Insomnia [Recovered/Resolved]
  - Hallucination [Recovered/Resolved]
  - Abnormal dreams [Recovered/Resolved]
  - Nightmare [Recovered/Resolved]
  - Middle insomnia [Recovered/Resolved]
  - Rash macular [Recovered/Resolved]
  - Abdominal pain upper [Recovered/Resolved]
  - Vomiting [Recovered/Resolved]
  - Nausea [Recovered/Resolved]
